FAERS Safety Report 14768535 (Version 1)
Quarter: 2018Q2

REPORT INFORMATION
  Report Type: Spontaneous
  Country: US (occurrence: US)
  Receive Date: 20180410
  Receipt Date: 20180410
  Transmission Date: 20180711
  Serious: Yes (Other)
  Sender: FDA-Public Use
  Company Number: None

PATIENT
  Age: 61 Year
  Sex: Male
  Weight: 84.6 kg

DRUGS (1)
  1. EYLEA [Suspect]
     Active Substance: AFLIBERCEPT
     Indication: DIABETIC RETINAL OEDEMA
     Dosage: ?          OTHER FREQUENCY:ONE TIME USE;?
     Route: 047
     Dates: start: 20180321, end: 20180321

REACTIONS (2)
  - Vitritis [None]
  - Iridocyclitis [None]

NARRATIVE: CASE EVENT DATE: 20180409
